FAERS Safety Report 13121430 (Version 3)
Quarter: 2017Q1

REPORT INFORMATION
  Report Type: Spontaneous
  Country: BR (occurrence: BR)
  Receive Date: 20170117
  Receipt Date: 20170203
  Transmission Date: 20170428
  Serious: Yes (Other)
  Sender: FDA-Public Use
  Company Number: BR-GLAXOSMITHKLINE-BR2017GSK005666

PATIENT
  Sex: Female

DRUGS (2)
  1. NIQUITIN [Suspect]
     Active Substance: NICOTINE
     Indication: PRODUCT USED FOR UNKNOWN INDICATION
     Dosage: UNK
  2. BUP [Concomitant]
     Active Substance: BUPROPION HYDROCHLORIDE
     Indication: PRODUCT USED FOR UNKNOWN INDICATION
     Dosage: UNK

REACTIONS (13)
  - Ankyloglossia congenital [Unknown]
  - Erythema [Unknown]
  - Headache [Unknown]
  - Pyrexia [Unknown]
  - Extra dose administered [Unknown]
  - Wrong technique in product usage process [Unknown]
  - Nervousness [Unknown]
  - Product quality issue [Unknown]
  - Pharyngeal neoplasm [Unknown]
  - Dengue fever [Unknown]
  - Stress [Unknown]
  - Oedema [Unknown]
  - Dysphonia [Unknown]
